FAERS Safety Report 7656761-1 (Version None)
Quarter: 2011Q3

REPORT INFORMATION
  Report Type: 
  Country: None (occurrence: None)
  Receive Date: 20110801
  Receipt Date: 20110715
  Transmission Date: 20111222
  Serious: Yes (Other)
  Sender: FDA-Public Use
  Company Number: AUR-APL-2011-04349

PATIENT
  Age: 53 Year
  Sex: Male

DRUGS (4)
  1. RIBAVIRIN [Suspect]
     Indication: HEPATITIS C
     Dosage: 1200 MG, 1 D,
  2. LEVETIRACETAM [Concomitant]
  3. PHENYTOIN [Concomitant]
  4. PEGIFNA-2B (PEGINTERFERON ALFA-2B) [Suspect]
     Indication: HEPATITIS C
     Dosage: 150 MCG, 1 WK;

REACTIONS (3)
  - AGITATION [None]
  - SUICIDAL IDEATION [None]
  - CONVULSION [None]
